FAERS Safety Report 20751150 (Version 1)
Quarter: 2022Q2

REPORT INFORMATION
  Report Type: Spontaneous
  Country: US (occurrence: US)
  Receive Date: 20220426
  Receipt Date: 20220426
  Transmission Date: 20220721
  Serious: No
  Sender: FDA-Public Use
  Company Number: US-PFIZER INC-202200294109

PATIENT
  Age: 59 Year
  Sex: Male

DRUGS (3)
  1. INLYTA [Suspect]
     Active Substance: AXITINIB
     Dosage: 1 TABLET (5 MG) BY MOUTH EVERY 12 HOURS AT EVENLY SPACED INTERVALS
     Route: 048
     Dates: start: 20220120, end: 20220206
  2. HYDROCORTISONE [Concomitant]
     Active Substance: HYDROCORTISONE
  3. LYSINE [Concomitant]
     Active Substance: LYSINE

REACTIONS (1)
  - Cardiac disorder [Unknown]
